FAERS Safety Report 13909131 (Version 1)
Quarter: 2017Q3

REPORT INFORMATION
  Report Type: Spontaneous
  Country: US (occurrence: US)
  Receive Date: 20170828
  Receipt Date: 20170828
  Transmission Date: 20171127
  Serious: Yes (Other)
  Sender: FDA-Public Use
  Company Number: US-HETERO CORPORATE-HET2017US00104

PATIENT

DRUGS (2)
  1. CITALOPRAM [Suspect]
     Active Substance: CITALOPRAM HYDROBROMIDE
     Indication: PRODUCT USED FOR UNKNOWN INDICATION
     Dosage: 20 MG, QD
     Route: 065
  2. BUPROPION. [Suspect]
     Active Substance: BUPROPION
     Indication: NEUROENDOCRINE TUMOUR OF THE LUNG METASTATIC
     Route: 065

REACTIONS (2)
  - Condition aggravated [Recovering/Resolving]
  - Carcinoid syndrome [Recovering/Resolving]
